FAERS Safety Report 20677982 (Version 1)
Quarter: 2022Q2

REPORT INFORMATION
  Report Type: Spontaneous
  Country: US (occurrence: US)
  Receive Date: 20220406
  Receipt Date: 20220406
  Transmission Date: 20220721
  Serious: Yes (Life-Threatening, Other)
  Sender: FDA-Public Use
  Company Number: US-GLENMARK PHARMACEUTICALS-2022GMK071572

PATIENT
  Age: 39 Year
  Sex: Female

DRUGS (1)
  1. HYDRALAZINE HCL [Suspect]
     Active Substance: HYDRALAZINE HYDROCHLORIDE
     Indication: Hypertension
     Dosage: UNK
     Route: 065

REACTIONS (4)
  - Anti-neutrophil cytoplasmic antibody positive vasculitis [Recovering/Resolving]
  - Autoimmune myocarditis [Recovering/Resolving]
  - Ventricular fibrillation [Recovering/Resolving]
  - Cardiac arrest [Recovering/Resolving]
